FAERS Safety Report 10028310 (Version 1)
Quarter: 2014Q1

REPORT INFORMATION
  Report Type: Report from Study
  Country: US (occurrence: US)
  Receive Date: 20140321
  Receipt Date: 20140321
  Transmission Date: 20141002
  Serious: Yes (Hospitalization, Other)
  Sender: FDA-Public Use
  Company Number: US-ABBVIE-14P-163-1212036-00

PATIENT
  Age: 70 Year
  Sex: Female

DRUGS (6)
  1. HUMIRA [Suspect]
     Indication: COLITIS ULCERATIVE
     Dates: start: 20140129, end: 20140129
  2. HUMIRA [Suspect]
     Dates: start: 20140212, end: 20140212
  3. HUMIRA [Suspect]
     Dates: start: 20140226, end: 20140226
  4. ATIVAN [Concomitant]
     Indication: ANXIETY
     Dosage: DAILY
  5. ANXIETY PILL [Concomitant]
     Indication: ANXIETY
     Dosage: DAILY
  6. CELEXA [Concomitant]
     Indication: PRODUCT USED FOR UNKNOWN INDICATION

REACTIONS (9)
  - Gastrointestinal inflammation [Unknown]
  - Frequent bowel movements [Recovered/Resolved]
  - Haematochezia [Recovered/Resolved]
  - Weight decreased [Unknown]
  - Colitis ulcerative [Recovered/Resolved]
  - Drug ineffective [Not Recovered/Not Resolved]
  - Gastrointestinal infection [Unknown]
  - Pain [Unknown]
  - Diarrhoea [Unknown]
